FAERS Safety Report 8252453-9 (Version None)
Quarter: 2012Q2

REPORT INFORMATION
  Report Type: 
  Country: None (occurrence: None)
  Receive Date: 20120402
  Receipt Date: 20110708
  Transmission Date: 20120825
  Serious: No
  Sender: FDA-Public Use
  Company Number: US-ABBOTT-11P-163-0837952-00

PATIENT
  Sex: Male
  Weight: 83.536 kg

DRUGS (2)
  1. ANDROGEL [Suspect]
     Indication: BLOOD TESTOSTERONE DECREASED
     Dates: start: 20101101, end: 20110201
  2. ANDROGEL [Suspect]
     Dates: start: 20110201

REACTIONS (3)
  - ACNE [None]
  - ALOPECIA [None]
  - FATIGUE [None]
